FAERS Safety Report 9061438 (Version 1)
Quarter: 2013Q1

REPORT INFORMATION
  Report Type: Spontaneous
  Country: US (occurrence: None)
  Receive Date: 20130208
  Receipt Date: 20130208
  Transmission Date: 20140127
  Serious: No
  Sender: FDA-Public Use
  Company Number: None

PATIENT
  Sex: 0

DRUGS (3)
  1. MONTELUKAST [Suspect]
     Indication: ASTHMA
     Dates: start: 201210
  2. MONTELUKAST [Suspect]
     Indication: RHINITIS ALLERGIC
     Dates: start: 201210
  3. LORATIDINE [Concomitant]

REACTIONS (3)
  - Product substitution issue [None]
  - Drug ineffective [None]
  - Cough [None]
